FAERS Safety Report 19007314 (Version 1)
Quarter: 2021Q1

REPORT INFORMATION
  Report Type: Spontaneous
  Country: US (occurrence: US)
  Receive Date: 20210315
  Receipt Date: 20210315
  Transmission Date: 20210420
  Serious: No
  Sender: FDA-Public Use
  Company Number: None

PATIENT
  Age: 50 Year
  Sex: Female

DRUGS (3)
  1. POTASSIUM [Concomitant]
     Active Substance: POTASSIUM
     Dates: start: 20200726
  2. MAGNESIUM [Concomitant]
     Active Substance: MAGNESIUM
     Dates: start: 20200726
  3. KISQALI [Suspect]
     Active Substance: RIBOCICLIB
     Indication: BREAST CANCER
     Route: 048
     Dates: start: 20200923, end: 20210225

REACTIONS (1)
  - Treatment failure [None]

NARRATIVE: CASE EVENT DATE: 20210301
